FAERS Safety Report 18056692 (Version 3)
Quarter: 2020Q4

REPORT INFORMATION
  Report Type: Spontaneous
  Country: ES (occurrence: ES)
  Receive Date: 20200723
  Receipt Date: 20201223
  Transmission Date: 20210113
  Serious: Yes (Other)
  Sender: FDA-Public Use
  Company Number: ES-SUN PHARMACEUTICAL INDUSTRIES LTD-2020R1-253615

PATIENT
  Age: 31 Week
  Sex: Male

DRUGS (2)
  1. OCTREOTIDE. [Suspect]
     Active Substance: OCTREOTIDE
     Indication: HYPERINSULINISM
     Dosage: 8.9 MICROG/KG/DAY DIVIDED INTO 4 DAILY DOSES
     Route: 065
     Dates: start: 20190323
  2. OCTREOTIDE. [Suspect]
     Active Substance: OCTREOTIDE
     Indication: CONGENITAL HYPERINSULINAEMIC HYPOGLYCAEMIA

REACTIONS (4)
  - Skin haemorrhage [Unknown]
  - Cholelithiasis [Recovered/Resolved]
  - Pancreatic failure [Recovering/Resolving]
  - Vitamin K deficiency [Recovered/Resolved]

NARRATIVE: CASE EVENT DATE: 20190513
